FAERS Safety Report 7041926-2 (Version None)
Quarter: 2010Q4

REPORT INFORMATION
  Report Type: 
  Country: None (occurrence: None)
  Receive Date: 20101013
  Receipt Date: 20091110
  Transmission Date: 20110411
  Serious: No
  Sender: FDA-Public Use
  Company Number: US-ASTRAZENECA-2009SE14308

PATIENT
  Sex: Female

DRUGS (1)
  1. SYMBICORT [Suspect]
     Dosage: 160/4.5  120 INHALATIONS
     Route: 055

REACTIONS (2)
  - DRUG INEFFECTIVE [None]
  - INFLUENZA LIKE ILLNESS [None]
